FAERS Safety Report 6971022-1 (Version None)
Quarter: 2010Q3

REPORT INFORMATION
  Report Type: 
  Country: None (occurrence: None)
  Receive Date: 20100908
  Receipt Date: 20100830
  Transmission Date: 20110219
  Serious: Yes (Death, Hospitalization, Other)
  Sender: FDA-Public Use
  Company Number: US-TEVA-244693USA

PATIENT
  Sex: Female

DRUGS (10)
  1. CLOZAPINE [Suspect]
     Route: 048
     Dates: start: 20100617, end: 20100716
  2. LITHIUM [Concomitant]
     Dosage: 300/900
  3. AMITRIPTYLINE HYDROCHLORIDE [Concomitant]
  4. LORAZEPAM [Concomitant]
     Dosage: QHS
  5. LAMOTRIGINE [Concomitant]
     Dosage: QHS
  6. ESOMEPRAZOLE MAGNESIUM [Concomitant]
  7. INSULIN GLARGINE [Concomitant]
  8. JANUVIA [Concomitant]
  9. LOVASTATIN [Concomitant]
  10. CANDESARTAN CILEXETIL [Concomitant]

REACTIONS (2)
  - INFECTION [None]
  - MYOCARDIAL INFARCTION [None]
